FAERS Safety Report 23988876 (Version 1)
Quarter: 2024Q2

REPORT INFORMATION
  Report Type: Spontaneous
  Country: US (occurrence: US)
  Receive Date: 20240619
  Receipt Date: 20240619
  Transmission Date: 20240716
  Serious: No
  Sender: FDA-Public Use
  Company Number: US-CADILA HEALTHCARE LIMITED-US-ZYDUS-098354

PATIENT

DRUGS (1)
  1. MELOXICAM [Suspect]
     Active Substance: MELOXICAM
     Indication: Osteitis
     Dosage: 15 MILLIGRAM, QD
     Route: 048
     Dates: start: 20230916, end: 20230916

REACTIONS (4)
  - Vision blurred [Recovered/Resolved]
  - Photophobia [Recovered/Resolved]
  - Malaise [Recovered/Resolved]
  - Mydriasis [Recovered/Resolved]

NARRATIVE: CASE EVENT DATE: 20230916
